FAERS Safety Report 10094444 (Version 2)
Quarter: 2014Q2

REPORT INFORMATION
  Report Type: Spontaneous
  Country: FR (occurrence: None)
  Receive Date: 20140418
  Receipt Date: 20140514
  Transmission Date: 20141212
  Serious: Yes (Other)
  Sender: FDA-Public Use
  Company Number: 2014P1003258

PATIENT
  Age: 60 Year
  Sex: Male

DRUGS (1)
  1. CEFUROXIME [Suspect]
     Indication: ANTIBIOTIC PROPHYLAXIS
     Route: 031
     Dates: start: 201209, end: 201309

REACTIONS (5)
  - Overdose [None]
  - Macular oedema [None]
  - Retinal toxicity [None]
  - Retinal detachment [None]
  - Wrong technique in drug usage process [None]
